FAERS Safety Report 10258833 (Version 1)
Quarter: 2014Q2

REPORT INFORMATION
  Report Type: Spontaneous
  Country: US (occurrence: US)
  Receive Date: 20140625
  Receipt Date: 20140625
  Transmission Date: 20141212
  Serious: No
  Sender: FDA-Public Use
  Company Number: US-ASTELLAS-2013US007724

PATIENT
  Age: 64 Year
  Sex: Female

DRUGS (5)
  1. VESICARE [Suspect]
     Indication: PRODUCT USED FOR UNKNOWN INDICATION
     Route: 048
     Dates: start: 20130630
  2. ATIVAN [Concomitant]
     Indication: ANXIETY
     Route: 048
     Dates: start: 1992
  3. PROPYLTHIOURACIL [Concomitant]
     Indication: HYPERTHYROIDISM
     Route: 048
     Dates: start: 1987
  4. TEGRETOL [Concomitant]
     Indication: CONVULSION
     Route: 048
     Dates: start: 1982
  5. TRAZODONE [Concomitant]
     Indication: DEPRESSION
     Route: 048
     Dates: start: 2008

REACTIONS (3)
  - Drug ineffective [Unknown]
  - Pruritus [Unknown]
  - Nausea [Unknown]
